FAERS Safety Report 15701281 (Version 1)
Quarter: 2018Q4

REPORT INFORMATION
  Report Type: Spontaneous
  Country: FR (occurrence: FR)
  Receive Date: 20181207
  Receipt Date: 20181207
  Transmission Date: 20190205
  Serious: Yes (Hospitalization)
  Sender: FDA-Public Use
  Company Number: FR-MYLANLABS-2018M1090611

PATIENT
  Age: 39 Year
  Sex: Female

DRUGS (5)
  1. METHYLPREDNISOLONE. [Suspect]
     Active Substance: METHYLPREDNISOLONE
     Indication: PRODUCT USED FOR UNKNOWN INDICATION
     Route: 065
  2. EPINEPHRINE. [Suspect]
     Active Substance: EPINEPHRINE
     Indication: BRONCHOSPASM
     Dosage: 50 MICROGRAM
     Route: 042
  3. PENTASTARCH [Suspect]
     Active Substance: PENTASTARCH
     Indication: PRODUCT USED FOR UNKNOWN INDICATION
     Route: 065
  4. SODIUM CHLORIDE. [Suspect]
     Active Substance: SODIUM CHLORIDE
     Indication: PRODUCT USED FOR UNKNOWN INDICATION
     Route: 050
  5. AMOXICILLIN. [Suspect]
     Active Substance: AMOXICILLIN
     Indication: ANTIBIOTIC PROPHYLAXIS
     Dosage: 2 GRAM
     Route: 065

REACTIONS (4)
  - Anaphylactic reaction [Unknown]
  - Maternal exposure during delivery [Recovered/Resolved]
  - Uterine hypertonus [Unknown]
  - Maternal exposure during pregnancy [Recovered/Resolved]
